FAERS Safety Report 14908603 (Version 5)
Quarter: 2023Q4

REPORT INFORMATION
  Report Type: Spontaneous
  Country: DE (occurrence: DE)
  Receive Date: 20180517
  Receipt Date: 20231229
  Transmission Date: 20240109
  Serious: Yes (Hospitalization, Other)
  Sender: FDA-Public Use
  Company Number: None

PATIENT
  Age: 59 Year
  Sex: Female

DRUGS (8)
  1. DICLOFENAC [Suspect]
     Active Substance: DICLOFENAC
     Indication: Product used for unknown indication
     Dosage: 3 X /WOCHE, 3 X WEEKS
     Route: 065
  2. DICLOFENAC [Suspect]
     Active Substance: DICLOFENAC
     Dosage: 3 DOSAGE FORM
     Route: 065
  3. DICLOFENAC [Suspect]
     Active Substance: DICLOFENAC
     Dosage: 3 DOSAGE FORM
     Route: 065
  4. IBUPROFEN [Suspect]
     Active Substance: IBUPROFEN
     Indication: Arthralgia
     Dosage: 600 MILLIGRAM, 3 WEEK
     Route: 065
  5. IBUPROFEN [Suspect]
     Active Substance: IBUPROFEN
     Indication: Back pain
     Dosage: 600 MILLIGRAM, 3 PER WEEK
     Route: 065
  6. IBUPROFEN [Suspect]
     Active Substance: IBUPROFEN
     Dosage: 400 MILLIGRAM
     Route: 065
  7. MARCUMAR [Suspect]
     Active Substance: PHENPROCOUMON
     Indication: Product used for unknown indication
     Dosage: 3 MILLIGRAM(ACCORDING TO INR)
     Route: 065
  8. MARCUMAR [Suspect]
     Active Substance: PHENPROCOUMON
     Dosage: 3 MILLIGRAM(ACCORDING TO INR)
     Route: 065

REACTIONS (7)
  - Anaemia [Unknown]
  - Dizziness [Unknown]
  - Haematochezia [Unknown]
  - Dyspnoea [Unknown]
  - General physical health deterioration [Unknown]
  - Product monitoring error [Unknown]
  - Product prescribing error [Unknown]
